FAERS Safety Report 23079611 (Version 1)
Quarter: 2023Q4

REPORT INFORMATION
  Report Type: Spontaneous
  Country: None (occurrence: CA)
  Receive Date: 20231018
  Receipt Date: 20231018
  Transmission Date: 20240109
  Serious: Yes (Other)
  Sender: FDA-Public Use
  Company Number: CA-Harrow Eye-2147192

PATIENT
  Age: 67 Year
  Sex: Female
  Weight: 34 kg

DRUGS (23)
  1. MOXEZA [Suspect]
     Active Substance: MOXIFLOXACIN HYDROCHLORIDE
     Indication: Product used for unknown indication
  2. OMALIZUMAB [Suspect]
     Active Substance: OMALIZUMAB
     Route: 058
  3. OMALIZUMAB [Suspect]
     Active Substance: OMALIZUMAB
  4. CIPROFLOXACIN HYDROCHLORIDE [Suspect]
     Active Substance: CIPROFLOXACIN HYDROCHLORIDE
  5. RISEDRONATE SODIUM [Suspect]
     Active Substance: RISEDRONATE SODIUM
  6. ROSUVASTATIN CALCIUM [Suspect]
     Active Substance: ROSUVASTATIN CALCIUM
     Route: 048
  7. RITUXIMAB [Suspect]
     Active Substance: RITUXIMAB
  8. CLONAZEPAM [Suspect]
     Active Substance: CLONAZEPAM
  9. ASPIRIN [Suspect]
     Active Substance: ASPIRIN
  10. FLUTICASONE PROPIONATE [Suspect]
     Active Substance: FLUTICASONE PROPIONATE
  11. AMLODIPINE BESYLATE [Suspect]
     Active Substance: AMLODIPINE BESYLATE
  12. BECLOMETHASONE [Suspect]
     Active Substance: BECLOMETHASONE
  13. CALCIUM [Suspect]
     Active Substance: CALCIUM
  14. ERGOCALCIFEROL [Suspect]
     Active Substance: ERGOCALCIFEROL
  15. FOLIC ACID [Suspect]
     Active Substance: FOLIC ACID
  16. PREDNISONE [Suspect]
     Active Substance: PREDNISONE
  17. PREDNISONE [Suspect]
     Active Substance: PREDNISONE
  18. SINGULAIR [Suspect]
     Active Substance: MONTELUKAST SODIUM
  19. THEOPHYLLINE [Suspect]
     Active Substance: THEOPHYLLINE
  20. TRAMADOL HYDROCHLORIDE [Suspect]
     Active Substance: TRAMADOL HYDROCHLORIDE
  21. AMLODIPINE [Suspect]
     Active Substance: AMLODIPINE BESYLATE
  22. CALCIUM CARBONATE [Suspect]
     Active Substance: CALCIUM CARBONATE
  23. ACETAMINOPHEN\TRAMADOL [Suspect]
     Active Substance: ACETAMINOPHEN\TRAMADOL

REACTIONS (13)
  - Chest pain [Not Recovered/Not Resolved]
  - Pneumonia [Not Recovered/Not Resolved]
  - Malaise [Not Recovered/Not Resolved]
  - Oedema [Not Recovered/Not Resolved]
  - Wheezing [Not Recovered/Not Resolved]
  - Nasal oedema [Not Recovered/Not Resolved]
  - Asthma [Not Recovered/Not Resolved]
  - Pain [Not Recovered/Not Resolved]
  - Cough [Not Recovered/Not Resolved]
  - Drug hypersensitivity [Not Recovered/Not Resolved]
  - Respiratory tract infection [Not Recovered/Not Resolved]
  - Vomiting [Not Recovered/Not Resolved]
  - Dyspnoea [Not Recovered/Not Resolved]
